FAERS Safety Report 5874683-3 (Version None)
Quarter: 2008Q3

REPORT INFORMATION
  Report Type: 
  Country: None (occurrence: None)
  Receive Date: 20080902
  Receipt Date: 20080822
  Transmission Date: 20090109
  Serious: Yes (Hospitalization)
  Sender: FDA-Public Use
  Company Number: 2008BI008251

PATIENT
  Age: 53 Year
  Sex: Female
  Weight: 112 kg

DRUGS (2)
  1. TYSABRI [Suspect]
     Indication: MULTIPLE SCLEROSIS
     Dosage: 300 MG; QW; IV
     Route: 042
     Dates: start: 20071218
  2. 14 UNSPECIFIED CONCOMITANT DRUGS [Concomitant]

REACTIONS (2)
  - ANGINA PECTORIS [None]
  - HYPERLIPIDAEMIA [None]
